FAERS Safety Report 7757615-2 (Version None)
Quarter: 2011Q3

REPORT INFORMATION
  Report Type: 
  Country: None (occurrence: None)
  Receive Date: 20110916
  Receipt Date: 20110914
  Transmission Date: 20111222
  Serious: Yes (Death, Other)
  Sender: FDA-Public Use
  Company Number: JP-PFIZER INC-2011196792

PATIENT
  Age: 71 Year
  Sex: Male
  Weight: 45 kg

DRUGS (7)
  1. ETHAMBUTOL HYDROCHLORIDE [Concomitant]
     Indication: MYCOBACTERIUM AVIUM COMPLEX INFECTION
     Dosage: 750 MG, 1X/DAY
     Route: 048
     Dates: end: 20110317
  2. ACTOS [Concomitant]
     Dosage: 30 MG, 1X/DAY
     Route: 048
     Dates: end: 20110317
  3. KANAMYCIN [Concomitant]
     Indication: MYCOBACTERIUM AVIUM COMPLEX INFECTION
     Dosage: 0.75 G, ALTERNATE DAY
     Route: 048
     Dates: end: 20110317
  4. JANUVIA [Concomitant]
     Dosage: 50 MG, 1X/DAY
     Route: 048
     Dates: end: 20110317
  5. RIFABUTIN [Suspect]
     Indication: MYCOBACTERIUM AVIUM COMPLEX INFECTION
     Dosage: 300 MG, 1X/DAY
     Route: 048
     Dates: start: 20101227, end: 20110317
  6. CLARITHROMYCIN [Concomitant]
     Indication: MYCOBACTERIUM AVIUM COMPLEX INFECTION
     Dosage: 400 MG, 2X/DAY
     Route: 048
     Dates: end: 20110317
  7. FERROUS CITRATE [Concomitant]
     Indication: IRON DEFICIENCY ANAEMIA
     Dosage: 100 MG, 1X/DAY
     Route: 048
     Dates: end: 20110317

REACTIONS (3)
  - GASTROINTESTINAL HAEMORRHAGE [None]
  - PNEUMONIA [None]
  - ANAEMIA [None]
